FAERS Safety Report 9034593 (Version 1)
Quarter: 2013Q1

REPORT INFORMATION
  Report Type: Spontaneous
  Country: TW (occurrence: None)
  Receive Date: 20130118
  Receipt Date: 20130118
  Transmission Date: 20140127
  Serious: Yes (Hospitalization)
  Sender: FDA-Public Use
  Company Number: 2012-16147

PATIENT
  Age: 30 Year
  Sex: Female

DRUGS (3)
  1. VENLAFAXINE HCL [Suspect]
     Indication: SUICIDE ATTEMPT
     Route: 048
  2. BUPROPION HYDROCHLORIDE [Suspect]
     Indication: SUICIDE ATTEMPT
     Route: 048
  3. LORAZEPAM [Suspect]
     Indication: SUICIDE ATTEMPT
     Route: 048

REACTIONS (20)
  - Intentional overdose [None]
  - Central nervous system necrosis [None]
  - Serotonin syndrome [None]
  - Tachycardia [None]
  - Electrocardiogram QRS complex prolonged [None]
  - Electrocardiogram abnormal [None]
  - Respiratory distress [None]
  - Myoclonus [None]
  - Pyrexia [None]
  - Somnolence [None]
  - Confusional state [None]
  - Agitation [None]
  - Altered state of consciousness [None]
  - Dyskinesia [None]
  - Akathisia [None]
  - Drug withdrawal syndrome [None]
  - Choreoathetosis [None]
  - Memory impairment [None]
  - Communication disorder [None]
  - Executive dysfunction [None]
